FAERS Safety Report 4408660-6 (Version None)
Quarter: 2004Q3

REPORT INFORMATION
  Report Type: 
  Country: None (occurrence: None)
  Receive Date: 20040722
  Receipt Date: 20040707
  Transmission Date: 20050211
  Serious: Yes (Other)
  Sender: FDA-Public Use
  Company Number: 199937

PATIENT
  Age: 57 Year
  Sex: Female
  Weight: 60.3284 kg

DRUGS (5)
  1. AVONEX [Suspect]
     Indication: MULTIPLE SCLEROSIS
     Dosage: 30 MG QW IM
     Route: 030
     Dates: start: 19990101, end: 20040201
  2. AVONEX [Suspect]
     Indication: MULTIPLE SCLEROSIS
     Dosage: 30 MCG QW IM
     Route: 030
     Dates: start: 20040201
  3. BACLOFEN [Concomitant]
  4. NEURONTIN [Concomitant]
  5. DETROL [Concomitant]

REACTIONS (8)
  - ARTHRALGIA [None]
  - ASEPTIC NECROSIS BONE [None]
  - ATAXIA [None]
  - INTERVERTEBRAL DISC DEGENERATION [None]
  - JOINT STIFFNESS [None]
  - MENISCUS LESION [None]
  - MUSCLE CRAMP [None]
  - OEDEMA PERIPHERAL [None]
